FAERS Safety Report 6332292-6 (Version None)
Quarter: 2009Q3

REPORT INFORMATION
  Report Type: 
  Country: None (occurrence: None)
  Receive Date: 20090827
  Receipt Date: 20090827
  Transmission Date: 20100115
  Serious: Yes (Hospitalization)
  Sender: FDA-Public Use
  Company Number: None

PATIENT
  Sex: Female
  Weight: 60 kg

DRUGS (3)
  1. CIMZIA [Suspect]
     Indication: CROHN'S DISEASE
     Dosage: UNKNOWN IV
     Route: 042
  2. IMURAN [Concomitant]
  3. PREDNISONE TAB [Concomitant]

REACTIONS (3)
  - HYPOPHAGIA [None]
  - OCULAR HYPERAEMIA [None]
  - ORAL HERPES [None]
